FAERS Safety Report 7759405-3 (Version None)
Quarter: 2011Q3

REPORT INFORMATION
  Report Type: 
  Country: None (occurrence: None)
  Receive Date: 20110919
  Receipt Date: 20110907
  Transmission Date: 20111222
  Serious: Yes (Hospitalization)
  Sender: FDA-Public Use
  Company Number: JP-JNJFOC-20110901481

PATIENT
  Sex: Female

DRUGS (36)
  1. WARFARIN SODIUM [Suspect]
     Indication: ATRIAL FIBRILLATION
     Route: 048
     Dates: start: 20110813
  2. CARVEDILOL [Concomitant]
     Route: 048
     Dates: start: 20110808, end: 20110810
  3. ATELEC [Concomitant]
     Route: 048
     Dates: start: 20110812, end: 20110822
  4. ACETAMINOPHEN [Concomitant]
     Route: 048
     Dates: start: 20110808, end: 20110808
  5. LASIX [Concomitant]
     Route: 048
  6. CARVEDILOL [Concomitant]
     Route: 048
     Dates: start: 20110812, end: 20110822
  7. WARFARIN SODIUM [Concomitant]
     Route: 048
     Dates: start: 20110808, end: 20110810
  8. LAC-B [Concomitant]
     Route: 048
     Dates: start: 20110809, end: 20110809
  9. LAC-B [Concomitant]
     Route: 048
     Dates: start: 20110809, end: 20110809
  10. MUCODYNE-DS [Concomitant]
     Route: 048
     Dates: start: 20110809, end: 20110809
  11. VECURONIUM BROMIDE [Concomitant]
     Route: 065
     Dates: start: 20110809, end: 20110809
  12. WARFARIN SODIUM [Concomitant]
     Route: 048
     Dates: start: 20110813, end: 20110814
  13. ZITHROMAX [Concomitant]
     Route: 048
     Dates: start: 20110808, end: 20110808
  14. RINDERON-VG [Concomitant]
     Route: 061
     Dates: start: 20110815
  15. PHENOXYMETHYL PENICILLIN [Suspect]
     Indication: PNEUMONIA
     Route: 042
     Dates: start: 20110809, end: 20110815
  16. LASIX [Concomitant]
     Route: 048
     Dates: start: 20110814, end: 20110822
  17. ASPIRIN [Concomitant]
     Route: 048
     Dates: start: 20110808, end: 20110822
  18. LEVOTHYROXINE SODIUM [Concomitant]
     Route: 048
     Dates: start: 20110808, end: 20110822
  19. ATELEC [Concomitant]
     Route: 048
     Dates: start: 20110808, end: 20110810
  20. ACETAMINOPHEN [Concomitant]
     Route: 065
     Dates: start: 20110809
  21. PRAVASTATIN SODIUM [Concomitant]
     Route: 048
     Dates: start: 20110808, end: 20110810
  22. ZYRTEC [Concomitant]
     Route: 048
     Dates: start: 20110820, end: 20110822
  23. ASTAT [Concomitant]
     Route: 061
     Dates: start: 20110817
  24. LANSOPRAZOLE [Concomitant]
     Route: 048
     Dates: start: 20110808, end: 20110809
  25. WARFARIN SODIUM [Concomitant]
     Route: 048
     Dates: start: 20110815, end: 20110822
  26. TARGOCID [Concomitant]
     Route: 065
     Dates: start: 20110808, end: 20110808
  27. WARFARIN SODIUM [Suspect]
     Indication: ATRIAL FIBRILLATION
     Route: 048
     Dates: start: 20110816
  28. LANSOPRAZOLE [Concomitant]
     Route: 048
     Dates: start: 20110811, end: 20110822
  29. PLAVIX [Concomitant]
     Route: 048
     Dates: start: 20110808, end: 20110822
  30. MUCODYNE-DS [Concomitant]
     Route: 048
     Dates: start: 20110810, end: 20110813
  31. WARFARIN SODIUM [Concomitant]
     Route: 048
     Dates: start: 20110818, end: 20110822
  32. LASIX [Concomitant]
     Route: 065
     Dates: start: 20110809, end: 20110809
  33. LEVOFLOXACIN [Suspect]
     Indication: PNEUMONIA
     Route: 048
     Dates: start: 20110816, end: 20110819
  34. JANUVIA [Concomitant]
     Route: 048
     Dates: start: 20110810, end: 20110816
  35. LASIX [Concomitant]
     Route: 048
     Dates: start: 20110812, end: 20110813
  36. PRAVASTATIN SODIUM [Concomitant]
     Route: 048
     Dates: start: 20110814, end: 20110822

REACTIONS (1)
  - TOXIC SKIN ERUPTION [None]
